FAERS Safety Report 8202919-2 (Version None)
Quarter: 2012Q1

REPORT INFORMATION
  Report Type: 
  Country: None (occurrence: None)
  Receive Date: 20120312
  Receipt Date: 20120306
  Transmission Date: 20120608
  Serious: Yes (Hospitalization)
  Sender: FDA-Public Use
  Company Number: JP-BAYER-2012-020645

PATIENT
  Age: 78 Year
  Sex: Male

DRUGS (5)
  1. ASPIRIN [Suspect]
     Indication: ANGINA PECTORIS
     Dosage: UNK
     Route: 048
     Dates: end: 20111001
  2. WARFARIN SODIUM [Suspect]
     Indication: ATRIAL FIBRILLATION
     Dosage: UNK
     Route: 048
     Dates: end: 20111001
  3. PROTON PUMP INHIBITORS [Concomitant]
     Indication: GASTRIC ULCER
     Dosage: UNK
     Dates: start: 20110916
  4. VITAMIN K AND OTHER HAEMOSTATICS [Concomitant]
     Indication: PROTHROMBIN TIME PROLONGED
     Dosage: UNK
     Route: 042
     Dates: start: 20111007
  5. EPINEPHRINE [Concomitant]
     Indication: GASTRIC ULCER HAEMORRHAGE
     Dosage: DAILY DOSE 8 ML
     Dates: start: 20111007

REACTIONS (1)
  - GASTRIC HAEMORRHAGE [None]
